FAERS Safety Report 9043275 (Version 1)
Quarter: 2013Q1

REPORT INFORMATION
  Report Type: Report from Study
  Country: US (occurrence: US)
  Receive Date: 20130129
  Receipt Date: 20130129
  Transmission Date: 20140127
  Serious: No
  Sender: FDA-Public Use
  Company Number: US-ABBOTT-12P-163-0912710-00

PATIENT
  Sex: Female
  Weight: 64.01 kg

DRUGS (24)
  1. HUMIRA 40 MG/ 0.8 ML PRE-FILLED SYRINGE [Suspect]
     Indication: RHEUMATOID ARTHRITIS
  2. METHOTREXATE [Concomitant]
     Indication: RHEUMATOID ARTHRITIS
  3. FOLIC ACID [Concomitant]
     Indication: VITAMIN SUPPLEMENTATION
  4. WELLBUTRIN [Concomitant]
     Indication: DEPRESSION
  5. PREDNISONE [Concomitant]
     Indication: RHEUMATOID ARTHRITIS
  6. OMEPRAZOLE [Concomitant]
     Indication: GASTROOESOPHAGEAL REFLUX DISEASE
  7. PROPANOLOL [Concomitant]
     Indication: ESSENTIAL TREMOR
  8. PROPANOLOL [Concomitant]
     Indication: HYPERTENSION
  9. MULTIVITAMIN [Concomitant]
     Indication: VITAMIN SUPPLEMENTATION
  10. CALTRATE WITH VITAMIN D [Concomitant]
     Indication: MINERAL SUPPLEMENTATION
  11. HYDROCODONE [Concomitant]
     Indication: PRODUCT USED FOR UNKNOWN INDICATION
  12. PLAQUENIL [Concomitant]
     Indication: RHEUMATOID ARTHRITIS
  13. MS CONTIN [Concomitant]
     Indication: PAIN
  14. CLONOPIN [Concomitant]
     Indication: DYSPHEMIA
  15. PAROXETINE [Concomitant]
     Indication: DEPRESSION
  16. EVOXAC [Concomitant]
     Indication: VITAMIN SUPPLEMENTATION
  17. EVOXAC [Concomitant]
     Indication: SJOGREN^S SYNDROME
  18. EVOXAC [Concomitant]
     Indication: DRY MOUTH
  19. TRILIPIX [Concomitant]
     Indication: BLOOD CHOLESTEROL INCREASED
  20. FLEXERIL [Concomitant]
     Indication: PRODUCT USED FOR UNKNOWN INDICATION
  21. COUMADIN [Concomitant]
     Indication: PULMONARY EMBOLISM
  22. AMITRIPTYLINE [Concomitant]
     Indication: PRODUCT USED FOR UNKNOWN INDICATION
  23. IPATROPIUM BROMIDE [Concomitant]
     Indication: NASAL DISORDER
  24. ALIGN PROBIOTIC [Concomitant]
     Indication: DIARRHOEA

REACTIONS (3)
  - Memory impairment [Not Recovered/Not Resolved]
  - Fibromyalgia [Not Recovered/Not Resolved]
  - Poor quality sleep [Not Recovered/Not Resolved]
